FAERS Safety Report 7236431-4 (Version None)
Quarter: 2011Q1

REPORT INFORMATION
  Report Type: 
  Country: None (occurrence: None)
  Receive Date: 20110120
  Receipt Date: 20110117
  Transmission Date: 20110831
  Serious: Yes (Life-Threatening, Other)
  Sender: FDA-Public Use
  Company Number: US-ROXANE LABORATORIES, INC.-2011-RO-00069RO

PATIENT
  Age: 67 Year
  Sex: Male

DRUGS (1)
  1. METHADONE HCL [Suspect]
     Indication: BONE PAIN
     Dosage: 160 MG

REACTIONS (2)
  - ACCIDENTAL OVERDOSE [None]
  - FALL [None]
